FAERS Safety Report 25773450 (Version 1)
Quarter: 2025Q3

REPORT INFORMATION
  Report Type: Spontaneous
  Country: US (occurrence: US)
  Receive Date: 20250908
  Receipt Date: 20250908
  Transmission Date: 20251021
  Serious: Yes (Other)
  Sender: AUROBINDO
  Company Number: US-AUROBINDO-AUR-APL-2025-044409

PATIENT
  Age: 82 Year
  Sex: Male

DRUGS (16)
  1. DEXAMETHASONE [Suspect]
     Active Substance: DEXAMETHASONE
     Indication: Product used for unknown indication
     Route: 065
  2. ASCORBIC ACID [Suspect]
     Active Substance: ASCORBIC ACID
     Indication: Arthralgia
     Route: 065
  3. ASCORBIC ACID [Suspect]
     Active Substance: ASCORBIC ACID
     Indication: Arthritis
  4. CHONDROITIN SULFATE (BOVINE) [Suspect]
     Active Substance: CHONDROITIN SULFATE (BOVINE)
     Indication: Arthralgia
     Route: 065
  5. CHONDROITIN SULFATE (BOVINE) [Suspect]
     Active Substance: CHONDROITIN SULFATE (BOVINE)
     Indication: Arthritis
  6. COLLAGEN [Suspect]
     Active Substance: COLLAGEN
     Indication: Arthralgia
     Route: 065
  7. COLLAGEN [Suspect]
     Active Substance: COLLAGEN
     Indication: Arthritis
  8. DIMETHYL SULFONE [Suspect]
     Active Substance: DIMETHYL SULFONE
     Indication: Arthralgia
     Route: 065
  9. DIMETHYL SULFONE [Suspect]
     Active Substance: DIMETHYL SULFONE
     Indication: Arthritis
  10. OMEGA 3 [Suspect]
     Active Substance: CAPSAICIN
     Indication: Arthralgia
     Route: 065
  11. OMEGA 3 [Suspect]
     Active Substance: CAPSAICIN
     Indication: Arthritis
  12. HERBALS\TURMERIC [Suspect]
     Active Substance: HERBALS\TURMERIC
     Indication: Arthralgia
     Route: 065
  13. HERBALS\TURMERIC [Suspect]
     Active Substance: HERBALS\TURMERIC
     Indication: Arthritis
  14. URTICA DIOICA WHOLE [Suspect]
     Active Substance: URTICA DIOICA WHOLE
     Indication: Arthralgia
     Route: 065
  15. URTICA DIOICA WHOLE [Suspect]
     Active Substance: URTICA DIOICA WHOLE
     Indication: Arthritis
  16. CARBIDOPA LEVODOPA [Concomitant]
     Active Substance: CARBIDOPA\LEVODOPA
     Indication: Product used for unknown indication
     Route: 065

REACTIONS (1)
  - Cushing^s syndrome [Unknown]
